FAERS Safety Report 4937856-X (Version None)
Quarter: 2006Q1

REPORT INFORMATION
  Report Type: 
  Country: None (occurrence: None)
  Receive Date: 20060309
  Receipt Date: 20050307
  Transmission Date: 20060701
  Serious: No
  Sender: FDA-Public Use
  Company Number: US-BRISTOL-MYERS SQUIBB COMPANY-12887956

PATIENT
  Age: 38 Year
  Sex: Female
  Weight: 77 kg

DRUGS (1)
  1. VAGISTAT-1 [Suspect]
     Indication: VAGINAL DISCHARGE
     Dates: start: 20050301, end: 20050301

REACTIONS (2)
  - BREAST SWELLING [None]
  - DYSURIA [None]
